FAERS Safety Report 4832013-X (Version None)
Quarter: 2005Q4

REPORT INFORMATION
  Report Type: 
  Country: None (occurrence: None)
  Receive Date: 20051118
  Receipt Date: 20051108
  Transmission Date: 20060501
  Serious: Yes (Hospitalization)
  Sender: FDA-Public Use
  Company Number: FR-AVENTIS-200513674FR

PATIENT
  Age: 23 Year
  Sex: Male

DRUGS (3)
  1. FLAGYL [Suspect]
     Indication: CROHN'S DISEASE
     Route: 048
     Dates: start: 20050921, end: 20050925
  2. PENTASA [Suspect]
     Indication: CROHN'S DISEASE
     Route: 048
     Dates: start: 20050921, end: 20050925
  3. TIORFAN [Suspect]
     Indication: CROHN'S DISEASE
     Route: 048

REACTIONS (5)
  - DERMATITIS BULLOUS [None]
  - DYSPHAGIA [None]
  - MUCOSAL EROSION [None]
  - RASH MACULO-PAPULAR [None]
  - STEVENS-JOHNSON SYNDROME [None]
